FAERS Safety Report 10587598 (Version 3)
Quarter: 2015Q2

REPORT INFORMATION
  Report Type: Report from Study
  Country: GR (occurrence: GR)
  Receive Date: 20141117
  Receipt Date: 20150602
  Transmission Date: 20150821
  Serious: Yes (Other)
  Sender: FDA-Public Use
  Company Number: GR-NOVOPROD-404705

PATIENT
  Age: 37 Year
  Sex: Female
  Weight: 85 kg

DRUGS (1)
  1. INSULIN DETEMIR FLEXPEN [Suspect]
     Active Substance: INSULIN DETEMIR
     Indication: GESTATIONAL DIABETES
     Dosage: 8 IU, QD
     Route: 065

REACTIONS (3)
  - Exposure during pregnancy [Recovered/Resolved]
  - Hepatitis [Unknown]
  - Premature delivery [Unknown]

NARRATIVE: CASE EVENT DATE: 20131004
